FAERS Safety Report 13672631 (Version 1)
Quarter: 2017Q2

REPORT INFORMATION
  Report Type: Spontaneous
  Country: FR (occurrence: FR)
  Receive Date: 20170621
  Receipt Date: 20170621
  Transmission Date: 20170830
  Serious: Yes (Hospitalization, Other)
  Sender: FDA-Public Use
  Company Number: FR-GLAXOSMITHKLINE-B0549940A

PATIENT
  Age: 3 Year
  Sex: Female

DRUGS (13)
  1. AMOXICILLIN. [Suspect]
     Active Substance: AMOXICILLIN
     Indication: VIRAL INFECTION
     Route: 065
     Dates: start: 20080612, end: 20080617
  2. FORTUM [Suspect]
     Active Substance: CEFTAZIDIME
     Indication: APLASIA
     Route: 065
     Dates: start: 20080528
  3. FUCIDINE [Suspect]
     Active Substance: FUSIDIC ACID
     Indication: EAR INFECTION
     Route: 065
     Dates: start: 20080530
  4. CLAFORAN [Suspect]
     Active Substance: CEFOTAXIME SODIUM
     Indication: PRODUCT USED FOR UNKNOWN INDICATION
     Dates: start: 200806
  5. ORELOX [Concomitant]
     Active Substance: CEFPODOXIME
     Indication: PNEUMOCOCCAL SEPSIS
  6. ROCEPHINE [Suspect]
     Active Substance: CEFTRIAXONE SODIUM
     Indication: PRODUCT USED FOR UNKNOWN INDICATION
     Route: 065
  7. EFFERALGAN [Suspect]
     Active Substance: ACETAMINOPHEN
     Indication: PRODUCT USED FOR UNKNOWN INDICATION
     Route: 065
  8. NALBUPHINE [Suspect]
     Active Substance: NALBUPHINE
     Indication: PRODUCT USED FOR UNKNOWN INDICATION
     Route: 065
  9. VANCOMYCINE [Suspect]
     Active Substance: VANCOMYCIN
     Indication: PRODUCT USED FOR UNKNOWN INDICATION
     Route: 065
     Dates: start: 200806
  10. ATARAX [Suspect]
     Active Substance: HYDROXYZINE HYDROCHLORIDE
     Indication: PRODUCT USED FOR UNKNOWN INDICATION
     Route: 065
  11. AMIKACIN [Suspect]
     Active Substance: AMIKACIN
     Indication: APLASIA
     Route: 065
     Dates: start: 20080528
  12. OFLOXACINE [Suspect]
     Active Substance: OFLOXACIN
     Indication: EAR INFECTION
     Dosage: EAR DROPS
     Route: 050
     Dates: start: 20080530
  13. ORELOX [Concomitant]
     Active Substance: CEFPODOXIME
     Indication: EAR INFECTION
     Route: 065
     Dates: start: 20080520

REACTIONS (1)
  - Toxic epidermal necrolysis [Recovered/Resolved with Sequelae]

NARRATIVE: CASE EVENT DATE: 20080617
